FAERS Safety Report 17992737 (Version 1)
Quarter: 2020Q3

REPORT INFORMATION
  Report Type: Spontaneous
  Country: NO (occurrence: NO)
  Receive Date: 20200707
  Receipt Date: 20200707
  Transmission Date: 20201103
  Serious: Yes (Death, Life-Threatening, Hospitalization, Other)
  Sender: FDA-Public Use
  Company Number: PHHY2018NO059325

PATIENT
  Age: 30 Year
  Sex: Male
  Weight: 50 kg

DRUGS (5)
  1. PARACETAMOL [Suspect]
     Active Substance: ACETAMINOPHEN
     Indication: ANALGESIC THERAPY
     Dosage: 10 DF, UNK  (1 G)
     Route: 042
  2. ACETAMINOPHEN AND CODEINE [Suspect]
     Active Substance: ACETAMINOPHEN\CODEINE PHOSPHATE
     Indication: ANALGESIC THERAPY
     Dosage: 14.5 G, UNK
     Route: 065
  3. PARACETAMOL [Suspect]
     Active Substance: ACETAMINOPHEN
     Dosage: 9 DF, UNK (0.5 G)
     Route: 048
  4. ACETAMINOPHEN AND CODEINE [Suspect]
     Active Substance: ACETAMINOPHEN\CODEINE PHOSPHATE
     Dosage: 9 DOSES OF 0.5 G IN COMBINATION
     Route: 065
  5. CODEINE [Concomitant]
     Active Substance: CODEINE
     Indication: PRODUCT USED FOR UNKNOWN INDICATION
     Dosage: 30 MG, UNK (TOTAL 14.5 G)
     Route: 065

REACTIONS (8)
  - Toxicity to various agents [Fatal]
  - Acute hepatic failure [Fatal]
  - Nausea [Fatal]
  - Circulatory collapse [Unknown]
  - Respiratory failure [Unknown]
  - Subileus [Fatal]
  - Chromaturia [Fatal]
  - Vomiting [Fatal]
